FAERS Safety Report 14936418 (Version 8)
Quarter: 2019Q4

REPORT INFORMATION
  Report Type: Report from Study
  Country: CA (occurrence: CA)
  Receive Date: 20180524
  Receipt Date: 20191107
  Transmission Date: 20200122
  Serious: Yes (Hospitalization, Other)
  Sender: FDA-Public Use
  Company Number: CA-BRISTOL-MYERS SQUIBB COMPANY-BMS-2017-046043

PATIENT
  Age: 42 Year
  Sex: Female

DRUGS (2)
  1. MYLAN GLICLAZIDE [Concomitant]
     Active Substance: GLICLAZIDE
     Indication: PRODUCT USED FOR UNKNOWN INDICATION
     Route: 065
  2. ABATACEPT [Suspect]
     Active Substance: ABATACEPT
     Indication: RHEUMATOID ARTHRITIS
     Dosage: 1000 MG, Q4WK
     Route: 042
     Dates: start: 20091119, end: 20190831

REACTIONS (13)
  - Gastric disorder [Unknown]
  - Dysstasia [Unknown]
  - Blood urine present [Recovered/Resolved]
  - Gait disturbance [Not Recovered/Not Resolved]
  - Diabetes mellitus [Not Recovered/Not Resolved]
  - Cystitis [Unknown]
  - Abdominal pain [Unknown]
  - Back pain [Unknown]
  - Oedema peripheral [Not Recovered/Not Resolved]
  - Pain in extremity [Recovered/Resolved]
  - Arthralgia [Not Recovered/Not Resolved]
  - Blood creatinine increased [Unknown]
  - Arthritis [Unknown]

NARRATIVE: CASE EVENT DATE: 20170321
